FAERS Safety Report 8202762-4 (Version None)
Quarter: 2012Q1

REPORT INFORMATION
  Report Type: 
  Country: None (occurrence: None)
  Receive Date: 20120312
  Receipt Date: 20120312
  Transmission Date: 20120608
  Serious: Yes (Life-Threatening, Hospitalization)
  Sender: FDA-Public Use
  Company Number: None

PATIENT
  Age: 68 Year
  Sex: Male
  Weight: 1245.1 kg

DRUGS (11)
  1. LISINOPRIL [Concomitant]
  2. METOLAZONE [Concomitant]
  3. PRADAXA [Suspect]
     Indication: ATRIAL FIBRILLATION
     Dosage: 150 MG
     Route: 048
     Dates: start: 20110901, end: 20120219
  4. CARVEDILOL [Concomitant]
  5. ALLOPURINOL [Concomitant]
  6. BUMEX [Concomitant]
  7. HYDROCODONE BITARTRATE [Concomitant]
  8. PRADAXA [Concomitant]
     Dosage: 150 MG
     Route: 048
     Dates: start: 20110901, end: 20120219
  9. METFORMIN HCL [Concomitant]
  10. VENLAFAXINE [Concomitant]
  11. CRESTOR [Concomitant]

REACTIONS (3)
  - ASTHENIA [None]
  - CONTUSION [None]
  - RECTAL HAEMORRHAGE [None]
